FAERS Safety Report 18054425 (Version 1)
Quarter: 2020Q3

REPORT INFORMATION
  Report Type: Spontaneous
  Country: PL (occurrence: PL)
  Receive Date: 20200722
  Receipt Date: 20200722
  Transmission Date: 20201103
  Serious: Yes (Other)
  Sender: FDA-Public Use
  Company Number: PL-IPSEN BIOPHARMACEUTICALS, INC.-2020-12755

PATIENT
  Age: 28 Year
  Sex: Male

DRUGS (3)
  1. SOMATULINE [Suspect]
     Active Substance: LANREOTIDE ACETATE
     Indication: OFF LABEL USE
  2. TEMOZOLOMIDE ACCORD [Suspect]
     Active Substance: TEMOZOLOMIDE
     Indication: BRAIN NEOPLASM MALIGNANT
     Route: 048
     Dates: start: 20171020, end: 20171025
  3. SOMATULINE [Suspect]
     Active Substance: LANREOTIDE ACETATE
     Indication: BRAIN NEOPLASM MALIGNANT
     Route: 042
     Dates: start: 20171020

REACTIONS (4)
  - Thrombocytopenia [Recovered/Resolved]
  - Incorrect route of product administration [Unknown]
  - Neutropenia [Recovered/Resolved]
  - Off label use [Unknown]

NARRATIVE: CASE EVENT DATE: 20171020
